FAERS Safety Report 26190157 (Version 2)
Quarter: 2025Q4

REPORT INFORMATION
  Report Type: Spontaneous
  Country: GB (occurrence: GB)
  Receive Date: 20251223
  Receipt Date: 20251225
  Transmission Date: 20260117
  Serious: Yes (Other)
  Sender: DR REDDYS
  Company Number: None

PATIENT
  Age: 69 Year
  Sex: Male

DRUGS (2)
  1. ATORVASTATIN [Suspect]
     Active Substance: ATORVASTATIN
     Indication: Product used for unknown indication
  2. CLARITHROMYCIN [Suspect]
     Active Substance: CLARITHROMYCIN
     Indication: Gastroenteritis

REACTIONS (4)
  - Myopathy [Recovering/Resolving]
  - Drug interaction [Unknown]
  - Fatigue [Unknown]
  - Weight decreased [Unknown]
